FAERS Safety Report 7458826-6 (Version None)
Quarter: 2011Q2

REPORT INFORMATION
  Report Type: 
  Country: None (occurrence: None)
  Receive Date: 20110504
  Receipt Date: 20110310
  Transmission Date: 20111010
  Serious: No
  Sender: FDA-Public Use
  Company Number: US-BAYER-2011-022140

PATIENT
  Sex: Male

DRUGS (2)
  1. CLARINEX [Concomitant]
  2. AVELOX [Suspect]
     Indication: INFECTION

REACTIONS (2)
  - PRURITUS [None]
  - ERYTHEMA [None]
